FAERS Safety Report 10136945 (Version 1)
Quarter: 2014Q2

REPORT INFORMATION
  Report Type: Spontaneous
  Country: US (occurrence: None)
  Receive Date: 20140428
  Receipt Date: 20140428
  Transmission Date: 20141212
  Serious: No
  Sender: FDA-Public Use
  Company Number: None

PATIENT
  Sex: 0

DRUGS (1)
  1. LANTUS SOLOSTAR [Suspect]
     Dosage: LOT# 3F539A?DATE: 07.2016

REACTIONS (3)
  - Product quality issue [None]
  - Device malfunction [None]
  - Incorrect dose administered [None]
